FAERS Safety Report 24904067 (Version 1)
Quarter: 2025Q1

REPORT INFORMATION
  Report Type: Report from Study
  Country: CA (occurrence: CA)
  Receive Date: 20250130
  Receipt Date: 20250130
  Transmission Date: 20250409
  Serious: Yes (Other)
  Sender: Alvotech
  Company Number: CA-JAMP PHARMA CORPORATION-2023-JAM-CA-00690

PATIENT
  Age: 64 Year
  Sex: Female

DRUGS (2)
  1. SIMLANDI [Suspect]
     Active Substance: ADALIMUMAB-RYVK
     Indication: Psoriatic arthropathy
     Dosage: 40 MILLIGRAM, EVERY 2 WEEKS
     Route: 058
     Dates: start: 20230423
  2. SIMLANDI [Suspect]
     Active Substance: ADALIMUMAB-RYVK
     Indication: Psoriatic arthropathy
     Dosage: 40 MG, EVERY TWO WEEKS
     Route: 058

REACTIONS (9)
  - Ventricular tachycardia [Unknown]
  - Injection site urticaria [Recovering/Resolving]
  - Injection site pruritus [Unknown]
  - Injection site erythema [Unknown]
  - Injection site swelling [Unknown]
  - Nausea [Recovering/Resolving]
  - Insomnia [Recovering/Resolving]
  - Erythema [Unknown]
  - Palpitations [Unknown]

NARRATIVE: CASE EVENT DATE: 20230509
